FAERS Safety Report 19412348 (Version 1)
Quarter: 2021Q2

REPORT INFORMATION
  Report Type: Spontaneous
  Country: PT (occurrence: PT)
  Receive Date: 20210614
  Receipt Date: 20210614
  Transmission Date: 20210717
  Serious: Yes (Other)
  Sender: FDA-Public Use
  Company Number: PT-US-PROVELL PHARMACEUTICALS LLC-9242188

PATIENT
  Sex: Female

DRUGS (1)
  1. LEVOTHYROXINE. [Suspect]
     Active Substance: LEVOTHYROXINE
     Indication: HYPOTHYROIDISM

REACTIONS (3)
  - Thyroid cancer [Unknown]
  - Thyroid mass [Unknown]
  - Weight decreased [Unknown]
